FAERS Safety Report 6709963-2 (Version None)
Quarter: 2010Q2

REPORT INFORMATION
  Report Type: 
  Country: None (occurrence: None)
  Receive Date: 20100429
  Receipt Date: 20100416
  Transmission Date: 20101027
  Serious: Yes (Life-Threatening, Hospitalization, Disabling)
  Sender: FDA-Public Use
  Company Number: 002534

PATIENT
  Sex: Male

DRUGS (5)
  1. NEUPRO [Suspect]
     Indication: PARKINSON'S DISEASE
     Dosage: 6 MG QD TRANSDERMAL, 6 MG 1X/24 HOURS
     Route: 062
     Dates: start: 20080922
  2. ROTIGOTINE [Suspect]
  3. STALEVO 100 [Concomitant]
  4. ELDEPRYL [Concomitant]
  5. KEMADRIN [Concomitant]

REACTIONS (9)
  - ANXIETY [None]
  - DRUG DISPENSING ERROR [None]
  - EXPIRED DRUG ADMINISTERED [None]
  - GENERAL PHYSICAL HEALTH DETERIORATION [None]
  - INSOMNIA [None]
  - PAIN IN EXTREMITY [None]
  - PARALYSIS [None]
  - SUICIDAL IDEATION [None]
  - TREMOR [None]
